FAERS Safety Report 6412747-6 (Version None)
Quarter: 2009Q4

REPORT INFORMATION
  Report Type: 
  Country: None (occurrence: None)
  Receive Date: 20091023
  Receipt Date: 20091020
  Transmission Date: 20100525
  Serious: Yes (Other)
  Sender: FDA-Public Use
  Company Number: DE-NAPPMUNDI-DEU-2009-0005634

PATIENT
  Age: 82 Year
  Sex: Male

DRUGS (1)
  1. OXYCODONE HCL [Suspect]
     Indication: BACK PAIN
     Dosage: UNK

REACTIONS (1)
  - HEPATIC ENZYME INCREASED [None]
